FAERS Safety Report 7372715-7 (Version None)
Quarter: 2011Q1

REPORT INFORMATION
  Report Type: 
  Country: None (occurrence: None)
  Receive Date: 20110311
  Receipt Date: 20110302
  Transmission Date: 20110831
  Serious: Yes (Hospitalization, Other)
  Sender: FDA-Public Use
  Company Number: 2011SP009800

PATIENT
  Age: 41 Year
  Sex: Female

DRUGS (13)
  1. ENOXAPARIN [Concomitant]
  2. COLACE [Concomitant]
  3. ZOSYN [Concomitant]
  4. BENTYL [Concomitant]
  5. FOLIC ACID [Concomitant]
  6. TUMS [Concomitant]
  7. NEXIUM [Concomitant]
  8. DILANTIN [Concomitant]
  9. MIRALAX [Concomitant]
  10. ALDACTONE [Concomitant]
  11. TEMODAR [Suspect]
     Indication: GLIOMA
     Dosage: 150 MG//M2, PO
     Route: 048
     Dates: start: 20100401
  12. LEVOTHYROXINE [Concomitant]
  13. LEXAPRO [Concomitant]

REACTIONS (2)
  - DEEP VEIN THROMBOSIS [None]
  - HYPERCOAGULATION [None]
